FAERS Safety Report 7164423-2 (Version None)
Quarter: 2010Q4

REPORT INFORMATION
  Report Type: 
  Country: None (occurrence: None)
  Receive Date: 20101215
  Receipt Date: 20101208
  Transmission Date: 20110411
  Serious: Yes (Death, Life-Threatening, Hospitalization, Other)
  Sender: FDA-Public Use
  Company Number: US-BAXTER-2010BH028571

PATIENT
  Age: 80 Year
  Sex: Male
  Weight: 75 kg

DRUGS (12)
  1. NITROGLYCERIN IN DEXTROSE 5% [Suspect]
     Indication: PRODUCT USED FOR UNKNOWN INDICATION
     Route: 065
     Dates: start: 20101022
  2. NITROGLYCERIN IN DEXTROSE 5% [Suspect]
     Route: 065
     Dates: start: 20101103, end: 20101104
  3. INTEGRILIN [Suspect]
     Indication: ARTERIAL OCCLUSIVE DISEASE
     Route: 042
     Dates: start: 20101022, end: 20101026
  4. INTEGRILIN [Suspect]
     Route: 042
     Dates: start: 20101103, end: 20101101
  5. PLAVIX [Suspect]
     Indication: PRODUCT USED FOR UNKNOWN INDICATION
     Route: 065
     Dates: start: 20101022
  6. PLAVIX [Suspect]
     Route: 065
     Dates: start: 20101103
  7. ANGIOMAX [Suspect]
     Indication: PRODUCT USED FOR UNKNOWN INDICATION
     Route: 065
     Dates: start: 20101022
  8. ANGIOMAX [Suspect]
     Route: 065
     Dates: start: 20101103
  9. LOVENOX [Suspect]
     Indication: PRODUCT USED FOR UNKNOWN INDICATION
     Route: 065
     Dates: start: 20101022
  10. LOVENOX [Suspect]
     Route: 065
     Dates: start: 20101103
  11. DARVOCET [Suspect]
     Indication: PRODUCT USED FOR UNKNOWN INDICATION
     Route: 065
     Dates: start: 20101103
  12. UNTROPIN [Suspect]
     Indication: PRODUCT USED FOR UNKNOWN INDICATION
     Route: 065
     Dates: start: 20101103

REACTIONS (6)
  - HAEMORRHAGE INTRACRANIAL [None]
  - HYPERSENSITIVITY [None]
  - HYPOTENSION [None]
  - MYOCARDIAL INFARCTION [None]
  - OVERDOSE [None]
  - PLATELET COUNT DECREASED [None]
